FAERS Safety Report 6939582-4 (Version None)
Quarter: 2010Q3

REPORT INFORMATION
  Report Type: 
  Country: None (occurrence: None)
  Receive Date: 20100820
  Receipt Date: 20100715
  Transmission Date: 20110219
  Serious: Yes (Death)
  Sender: FDA-Public Use
  Company Number: 1000014653

PATIENT
  Sex: Female

DRUGS (3)
  1. MEMANTINE HCL [Suspect]
     Indication: DEMENTIA ALZHEIMER'S TYPE
     Dosage: 5 MG (5MG, 1 IN 1D), ORAL
     Route: 048
     Dates: start: 20090801
  2. BROMAZEPAM [Concomitant]
  3. DONEPEZIL HCL [Concomitant]

REACTIONS (3)
  - EMBOLISM ARTERIAL [None]
  - FEMUR FRACTURE [None]
  - POST PROCEDURAL COMPLICATION [None]
